FAERS Safety Report 8996887 (Version 3)
Quarter: 2013Q1

REPORT INFORMATION
  Report Type: Spontaneous
  Country: TR (occurrence: TR)
  Receive Date: 20130104
  Receipt Date: 20130301
  Transmission Date: 20140127
  Serious: Yes (Death)
  Sender: FDA-Public Use
  Company Number: TR-ABBOTT-12P-161-1028441-00

PATIENT
  Age: 39 None
  Sex: Male
  Weight: 86 kg

DRUGS (1)
  1. HUMIRA [Suspect]
     Indication: ANKYLOSING SPONDYLITIS
     Route: 058
     Dates: start: 20100825

REACTIONS (6)
  - Small intestinal perforation [Fatal]
  - Vomiting [Fatal]
  - Abdominal pain [Fatal]
  - Post procedural haemorrhage [Unknown]
  - Crohn^s disease [Unknown]
  - Gastrointestinal haemorrhage [Fatal]
